FAERS Safety Report 6866089-5 (Version None)
Quarter: 2010Q3

REPORT INFORMATION
  Report Type: 
  Country: None (occurrence: None)
  Receive Date: 20100722
  Receipt Date: 20100712
  Transmission Date: 20110219
  Serious: Yes (Hospitalization)
  Sender: FDA-Public Use
  Company Number: US-JNJFOC-20100405830

PATIENT
  Sex: Female
  Weight: 75.3 kg

DRUGS (15)
  1. DOXORUBICIN HYDROCHLORIDE [Suspect]
     Indication: MULTIPLE MYELOMA
  2. BORTEZOMIB [Suspect]
     Indication: MULTIPLE MYELOMA
     Route: 042
  3. DECADRON [Suspect]
     Indication: MULTIPLE MYELOMA
     Route: 042
  4. FLUTICASONE PROPIONATE [Concomitant]
     Route: 045
  5. VALTREX [Concomitant]
     Route: 048
  6. ALPHA LIPOIC ACID [Concomitant]
     Indication: PROPHYLAXIS
     Route: 048
  7. ASPIRIN [Concomitant]
     Route: 048
  8. CHOLECALCIFEROL [Concomitant]
     Route: 048
  9. VICODIN [Concomitant]
     Indication: PAIN
     Dosage: 10 / 325 MG BID-TID
     Route: 048
  10. OXYCODONE HCL EXTENDED-RELEASE [Concomitant]
     Indication: PAIN
     Route: 048
  11. SIMVASTATIN [Concomitant]
     Indication: HYPERCHOLESTEROLAEMIA
     Route: 048
  12. ACYCLOVIR [Concomitant]
     Indication: HERPES ZOSTER
     Route: 048
  13. OXYCODONE [Concomitant]
     Indication: BREAKTHROUGH PAIN
     Route: 048
  14. ZOMETA [Concomitant]
     Indication: MULTIPLE MYELOMA
     Route: 042
  15. EPOETIN ALFA [Concomitant]
     Indication: ANAEMIA
     Route: 058

REACTIONS (2)
  - PNEUMONIA [None]
  - RESPIRATORY DISTRESS [None]
